FAERS Safety Report 5023186-7 (Version None)
Quarter: 2006Q2

REPORT INFORMATION
  Report Type: 
  Country: None (occurrence: None)
  Receive Date: 20060428
  Receipt Date: 20060320
  Transmission Date: 20061013
  Serious: No
  Sender: FDA-Public Use
  Company Number: 012167

PATIENT
  Age: 49 Year
  Sex: Female

DRUGS (1)
  1. PRIALT [Suspect]
     Indication: PELVIC PAIN
     Dosage: SEE IMAGE
     Route: 037
     Dates: start: 20010101

REACTIONS (7)
  - AMNESIA [None]
  - APHASIA [None]
  - BLOOD CREATINE PHOSPHOKINASE INCREASED [None]
  - BRADYPHRENIA [None]
  - DYSARTHRIA [None]
  - MUSCULAR WEAKNESS [None]
  - TINNITUS [None]
